FAERS Safety Report 9835044 (Version 1)
Quarter: 2014Q1

REPORT INFORMATION
  Report Type: Spontaneous
  Country: US (occurrence: US)
  Receive Date: 20140122
  Receipt Date: 20140122
  Transmission Date: 20141002
  Serious: No
  Sender: FDA-Public Use
  Company Number: US-ACORDA-ACO_34650_2013

PATIENT
  Sex: 0

DRUGS (2)
  1. ZANAFLEX TABLETS [Suspect]
     Indication: PRODUCT USED FOR UNKNOWN INDICATION
  2. VALIUM [Suspect]
     Indication: PRODUCT USED FOR UNKNOWN INDICATION
     Dosage: UNK

REACTIONS (1)
  - Drug screen positive [Unknown]
